FAERS Safety Report 8200231-9 (Version None)
Quarter: 2012Q1

REPORT INFORMATION
  Report Type: 
  Country: None (occurrence: None)
  Receive Date: 20120312
  Receipt Date: 20120309
  Transmission Date: 20120608
  Serious: Yes (Other)
  Sender: FDA-Public Use
  Company Number: US-PFIZER INC-2012063609

PATIENT
  Sex: Male
  Weight: 95.238 kg

DRUGS (6)
  1. METOPROLOL [Concomitant]
     Dosage: 25 MG, UNK
  2. MULTI-VITAMINS [Concomitant]
     Dosage: UNK, 1X/DAY
  3. LOSARTAN [Concomitant]
     Dosage: 25 MG, UNK
  4. LIPITOR [Suspect]
     Indication: BLOOD CHOLESTEROL INCREASED
     Dosage: 40 MG, 1X/DAY
     Route: 048
  5. ACETYLSALICYLIC ACID [Concomitant]
     Dosage: UNK
  6. GLIMEPIRIDE [Concomitant]
     Dosage: 2 MG, UNK

REACTIONS (1)
  - MYOCARDIAL INFARCTION [None]
